FAERS Safety Report 18675293 (Version 1)
Quarter: 2020Q4

REPORT INFORMATION
  Report Type: Spontaneous
  Country: US (occurrence: US)
  Receive Date: 20201228
  Receipt Date: 20201228
  Transmission Date: 20210114
  Serious: No
  Sender: FDA-Public Use
  Company Number: None

PATIENT
  Age: 29 Year
  Sex: Male
  Weight: 107 kg

DRUGS (1)
  1. ACETYLCYSTEINE. [Suspect]
     Active Substance: ACETYLCYSTEINE
     Indication: OVERDOSE
     Dates: start: 20201225, end: 20201225

REACTIONS (1)
  - Anaphylactoid reaction [None]

NARRATIVE: CASE EVENT DATE: 20201225
